FAERS Safety Report 7288735-7 (Version None)
Quarter: 2011Q1

REPORT INFORMATION
  Report Type: 
  Country: None (occurrence: None)
  Receive Date: 20110211
  Receipt Date: 20110202
  Transmission Date: 20110831
  Serious: Yes (Other)
  Sender: FDA-Public Use
  Company Number: PHHY2011AU08450

PATIENT
  Sex: Female

DRUGS (1)
  1. ESTALIS CONTINUOUS [Suspect]
     Dosage: 50/140 PATCH TWICE DAILY
     Route: 062
     Dates: start: 20101216

REACTIONS (4)
  - DEPRESSION [None]
  - FIBROMYALGIA [None]
  - DYSMENORRHOEA [None]
  - VAGINAL HAEMORRHAGE [None]
